FAERS Safety Report 22163189 (Version 2)
Quarter: 2023Q2

REPORT INFORMATION
  Report Type: Report from Study
  Country: US (occurrence: US)
  Receive Date: 20230401
  Receipt Date: 20230405
  Transmission Date: 20230721
  Serious: No
  Sender: FDA-Public Use
  Company Number: US-002147023-NVSC2023US074131

PATIENT
  Sex: Female
  Weight: 109.75 kg

DRUGS (2)
  1. COSENTYX [Suspect]
     Active Substance: SECUKINUMAB
     Indication: Psoriasis
     Route: 065
  2. LEVOTHYROXINE [Suspect]
     Active Substance: LEVOTHYROXINE
     Indication: Psoriasis
     Route: 065

REACTIONS (12)
  - Cyst [Unknown]
  - Dermal cyst [Unknown]
  - Seborrhoeic keratosis [Unknown]
  - Papule [Unknown]
  - Solar lentigo [Unknown]
  - Intertrigo [Unknown]
  - Rash erythematous [Unknown]
  - Haemangioma of skin [Unknown]
  - Melanocytic naevus [Unknown]
  - Macule [Unknown]
  - Psoriasis [Unknown]
  - Drug ineffective [Unknown]
